FAERS Safety Report 21620401 (Version 1)
Quarter: 2022Q4

REPORT INFORMATION
  Report Type: Spontaneous
  Country: AR (occurrence: AR)
  Receive Date: 20221121
  Receipt Date: 20221121
  Transmission Date: 20230113
  Serious: Yes (Hospitalization, Disabling)
  Sender: FDA-Public Use
  Company Number: AR-002147023-NVSC2022AR260652

PATIENT
  Age: 40 Year
  Sex: Female

DRUGS (1)
  1. HYDROCHLOROTHIAZIDE\VALSARTAN [Suspect]
     Active Substance: HYDROCHLOROTHIAZIDE\VALSARTAN
     Indication: Hypertension
     Dosage: 1 MG, QD
     Route: 048
     Dates: start: 201211

REACTIONS (2)
  - Foot fracture [Recovered/Resolved]
  - Gangrene [Recovered/Resolved]
